FAERS Safety Report 15077638 (Version 2)
Quarter: 2018Q3

REPORT INFORMATION
  Report Type: Spontaneous
  Country: FR (occurrence: FR)
  Receive Date: 20180627
  Receipt Date: 20180720
  Transmission Date: 20181010
  Serious: Yes (Hospitalization)
  Sender: FDA-Public Use
  Company Number: FR-ROCHE-2146106

PATIENT
  Age: 63 Year
  Sex: Male
  Weight: 75 kg

DRUGS (5)
  1. METHOTREXATE. [Concomitant]
     Active Substance: METHOTREXATE
     Route: 065
  2. ORENCIA [Concomitant]
     Active Substance: ABATACEPT
     Route: 065
  3. DAFALGAN CODEINE [Concomitant]
     Active Substance: ACETAMINOPHEN\CODEINE PHOSPHATE
     Route: 065
  4. SPECIAFOLDINE [Concomitant]
     Active Substance: FOLIC ACID
     Route: 065
  5. ROACTEMRA [Suspect]
     Active Substance: TOCILIZUMAB
     Indication: RHEUMATOID ARTHRITIS
     Route: 042
     Dates: start: 201802, end: 201805

REACTIONS (3)
  - Skin ulcer [Recovering/Resolving]
  - Skin erosion [Recovering/Resolving]
  - Condition aggravated [Recovering/Resolving]

NARRATIVE: CASE EVENT DATE: 201802
